FAERS Safety Report 13904486 (Version 2)
Quarter: 2017Q3

REPORT INFORMATION
  Report Type: Spontaneous
  Country: DK (occurrence: DK)
  Receive Date: 20170825
  Receipt Date: 20170901
  Transmission Date: 20171127
  Serious: Yes (Hospitalization, Other)
  Sender: FDA-Public Use
  Company Number: DK-GILEAD-2017-0289124

PATIENT
  Age: 77 Year
  Sex: Male

DRUGS (11)
  1. ALLOPURINOL TEVA [Concomitant]
     Active Substance: ALLOPURINOL
     Indication: GOUTY ARTHRITIS
  2. GANGIDEN [Concomitant]
     Indication: CONSTIPATION
     Dosage: VED BEHOV
  3. IMODIUM [Concomitant]
     Active Substance: LOPERAMIDE HYDROCHLORIDE
     Indication: DIARRHOEA
     Dosage: VED BEHOV
  4. ZYDELIG [Suspect]
     Active Substance: IDELALISIB
     Indication: BLOOD DISORDER
     Dosage: 150 MG, BID
     Route: 048
     Dates: start: 20151223, end: 20170726
  5. MOTILIUM [Concomitant]
     Active Substance: DOMPERIDONE
     Indication: NAUSEA
     Dosage: VED BEHOV
  6. LAXOBERAL [Concomitant]
     Active Substance: SODIUM PICOSULFATE
     Indication: CONSTIPATION
     Dosage: VED BEHOV
  7. MORFIN [Concomitant]
     Active Substance: MORPHINE SULFATE
     Indication: PAIN
     Dosage: VED BEHOV
  8. SIFROL [Concomitant]
     Active Substance: PRAMIPEXOLE
     Indication: RESTLESS LEGS SYNDROME
  9. GABAPENTIN ^PCD^ [Concomitant]
     Active Substance: GABAPENTIN
     Indication: PAIN
  10. SULFAMETHOXAZOL OG TRIMETHOPRIM [Concomitant]
     Indication: PROPHYLAXIS URINARY TRACT INFECTION
  11. TRADOLAN RETARD [Concomitant]
     Active Substance: TRAMADOL HYDROCHLORIDE
     Indication: PAIN

REACTIONS (7)
  - General physical health deterioration [Recovering/Resolving]
  - Hyperbilirubinaemia [Recovered/Resolved]
  - Haemolytic anaemia [Recovering/Resolving]
  - Fall [Recovered/Resolved]
  - Decreased appetite [Recovering/Resolving]
  - Fatigue [Recovering/Resolving]
  - Off label use [Recovered/Resolved]

NARRATIVE: CASE EVENT DATE: 201707
